FAERS Safety Report 8609954-0 (Version None)
Quarter: 2012Q3

REPORT INFORMATION
  Report Type: 
  Country: None (occurrence: None)
  Receive Date: 20120821
  Receipt Date: 20120808
  Transmission Date: 20120928
  Serious: Yes (Hospitalization)
  Sender: FDA-Public Use
  Company Number: FR-MYLANLABS-2012S1016199

PATIENT
  Age: 62 Year
  Sex: Male

DRUGS (5)
  1. VANCOMYCIN [Suspect]
     Route: 042
     Dates: start: 20120322, end: 20120529
  2. BACTRIM [Suspect]
     Dates: start: 20120529, end: 20120612
  3. CLINDAMYCIN HCL [Concomitant]
     Dates: start: 20120612
  4. CEFTRIAXONE [Suspect]
     Dates: start: 20120516, end: 20120529
  5. LEVOFLOXACIN [Concomitant]
     Dates: start: 20120529, end: 20120618

REACTIONS (2)
  - CONDITION AGGRAVATED [None]
  - PANCYTOPENIA [None]
